FAERS Safety Report 6194545-4 (Version None)
Quarter: 2009Q2

REPORT INFORMATION
  Report Type: 
  Country: None (occurrence: None)
  Receive Date: 20090519
  Receipt Date: 20090511
  Transmission Date: 20091009
  Serious: Yes (Other)
  Sender: FDA-Public Use
  Company Number: US-JNJFOC-20090502898

PATIENT
  Sex: Female
  Weight: 65.77 kg

DRUGS (9)
  1. DURAGESIC-100 [Suspect]
     Indication: BACK PAIN
     Route: 062
  2. FLEXERIL [Suspect]
     Indication: MUSCLE SPASMS
     Route: 065
  3. DILAUDID [Concomitant]
     Indication: PAIN
     Route: 048
  4. VICODIN [Concomitant]
     Indication: PAIN
     Route: 048
  5. PHENERGAN [Concomitant]
     Indication: GASTRIC DISORDER
     Route: 048
  6. IBUPROFEN [Concomitant]
     Indication: ARTHRALGIA
     Route: 048
  7. CELEXA [Concomitant]
     Indication: DEPRESSION
     Route: 065
  8. LEVOTHYROXINE SODIUM [Concomitant]
     Indication: HYPOTHYROIDISM
  9. XANAX [Concomitant]
     Indication: ANXIETY

REACTIONS (11)
  - ANXIETY [None]
  - DEPRESSION [None]
  - DRUG INEFFECTIVE [None]
  - FATIGUE [None]
  - HEADACHE [None]
  - HYPERHIDROSIS [None]
  - HYPOTHYROIDISM [None]
  - MUSCLE SPASMS [None]
  - NERVOUSNESS [None]
  - WITHDRAWAL SYNDROME [None]
  - WRONG TECHNIQUE IN DRUG USAGE PROCESS [None]
